FAERS Safety Report 7255530-4 (Version None)
Quarter: 2011Q1

REPORT INFORMATION
  Report Type: 
  Country: None (occurrence: None)
  Receive Date: 20110129
  Receipt Date: 20100407
  Transmission Date: 20110831
  Serious: Yes (Other)
  Sender: FDA-Public Use
  Company Number: US-ABBOTT-10P-163-0636971-00

PATIENT
  Sex: Female

DRUGS (5)
  1. TOPAMAX [Concomitant]
     Indication: MIGRAINE
  2. SYNTHROID [Concomitant]
     Indication: HYPOTHYROIDISM
  3. METFORMIN [Concomitant]
     Indication: DIABETES MELLITUS
  4. HUMIRA [Suspect]
     Indication: PSORIASIS
     Route: 058
     Dates: start: 20091101, end: 20100323
  5. ATARAX [Concomitant]
     Indication: PRODUCT USED FOR UNKNOWN INDICATION

REACTIONS (5)
  - FACE OEDEMA [None]
  - SKIN DISORDER [None]
  - LUPUS-LIKE SYNDROME [None]
  - ERYTHEMA [None]
  - PAIN OF SKIN [None]
